FAERS Safety Report 19237582 (Version 1)
Quarter: 2021Q2

REPORT INFORMATION
  Report Type: Report from Study
  Country: HU (occurrence: HU)
  Receive Date: 20210510
  Receipt Date: 20210510
  Transmission Date: 20210717
  Serious: No
  Sender: FDA-Public Use
  Company Number: HU-CELGENEUS-HUN-20210407214

PATIENT
  Age: 73 Year
  Sex: Female
  Weight: 88 kg

DRUGS (4)
  1. LIXIANA [Concomitant]
     Active Substance: EDOXABAN TOSYLATE
     Indication: ATRIAL FIBRILLATION
     Dosage: 60 MG X 1 X 24 HOURS
     Route: 048
     Dates: start: 2018, end: 20200817
  2. PRADAXA [Concomitant]
     Active Substance: DABIGATRAN ETEXILATE MESYLATE
     Indication: ATRIAL FIBRILLATION
     Dosage: 150 MG X 2 X 1 DAYS
     Route: 048
     Dates: start: 20200818
  3. FEDRATINIB [Suspect]
     Active Substance: FEDRATINIB
     Indication: PRIMARY MYELOFIBROSIS
     Dosage: 400 MG X 1 X 1 DAYS
     Route: 048
     Dates: start: 20200818, end: 20201012
  4. SOBICOR [Concomitant]
     Indication: ATRIAL FIBRILLATION
     Dosage: 5 MG X 2 X 1 DAYS
     Route: 048
     Dates: start: 2017

REACTIONS (1)
  - Vitamin B1 deficiency [Not Recovered/Not Resolved]

NARRATIVE: CASE EVENT DATE: 20201015
